FAERS Safety Report 8471171-5 (Version None)
Quarter: 2012Q2

REPORT INFORMATION
  Report Type: 
  Country: None (occurrence: None)
  Receive Date: 20120621
  Receipt Date: 20120613
  Transmission Date: 20120825
  Serious: Yes (Life-Threatening, Hospitalization, Other)
  Sender: FDA-Public Use
  Company Number: 2012MA007097

PATIENT
  Age: 47 Year
  Sex: Male

DRUGS (6)
  1. LORAZEPAM [Suspect]
     Indication: ANXIETY
     Dosage: 1 MG;PRN;PO
     Route: 048
     Dates: start: 20120430
  2. NITRAZEPAM [Suspect]
     Dosage: PO
     Route: 048
  3. BENZODIAZEPINE [Concomitant]
  4. ZOPICLONE (ZOPICLONE) [Suspect]
     Indication: INSOMNIA
     Dosage: 7.5 MG;QD;PO
     Route: 048
     Dates: start: 20120430
  5. CLOZARIL [Suspect]
     Indication: SCHIZOPHRENIA
     Dates: start: 20120501
  6. OLANZAPINE [Concomitant]

REACTIONS (6)
  - C-REACTIVE PROTEIN INCREASED [None]
  - NEUTROPHIL COUNT INCREASED [None]
  - PNEUMONIA ASPIRATION [None]
  - MULTIPLE DRUG OVERDOSE [None]
  - RESPIRATORY ARREST [None]
  - LOWER RESPIRATORY TRACT INFECTION [None]
